FAERS Safety Report 7037870-7 (Version None)
Quarter: 2010Q4

REPORT INFORMATION
  Report Type: 
  Country: None (occurrence: None)
  Receive Date: 20101011
  Receipt Date: 20101005
  Transmission Date: 20110411
  Serious: Yes (Death, Other)
  Sender: FDA-Public Use
  Company Number: US-ROXANE LABORATORIES, INC.-2010-RO-01315RO

PATIENT
  Age: 54 Year
  Sex: Female

DRUGS (4)
  1. HYDROMORPHONE HCL [Suspect]
     Indication: PAIN
     Route: 042
  2. HYDROMORPHONE HCL [Suspect]
     Route: 008
  3. FENTANYL [Suspect]
     Indication: PAIN
     Route: 008
  4. BUPIVACAINE HCL [Suspect]
     Indication: PAIN
     Route: 008

REACTIONS (4)
  - DEATH [None]
  - DELIRIUM [None]
  - DRUG INEFFECTIVE [None]
  - HYPERCALCAEMIA [None]
